FAERS Safety Report 15685012 (Version 1)
Quarter: 2018Q4

REPORT INFORMATION
  Report Type: Spontaneous
  Country: US (occurrence: US)
  Receive Date: 20181204
  Receipt Date: 20181204
  Transmission Date: 20190205
  Serious: No
  Sender: FDA-Public Use
  Company Number: US-ANTARES PHARMA, INC.-2018-SPO-MX-0402

PATIENT
  Age: 60 Year
  Sex: Female

DRUGS (5)
  1. OTREXUP [Suspect]
     Active Substance: METHOTREXATE
     Indication: OFF LABEL USE
  2. VALSARTAN/HCTZ FAIR-MED [Concomitant]
     Indication: HYPERTENSION
     Dosage: UNK MG, QD
  3. OTREXUP [Suspect]
     Active Substance: METHOTREXATE
     Indication: RHEUMATOID ARTHRITIS
     Dosage: 20 MG/0.4ML, QWK
     Route: 058
  4. CARVEDILOL. [Concomitant]
     Active Substance: CARVEDILOL
     Indication: HYPERTENSION
     Dosage: 12.5 MG, BID
  5. OTREXUP [Suspect]
     Active Substance: METHOTREXATE
     Indication: SYSTEMIC LUPUS ERYTHEMATOSUS

REACTIONS (3)
  - Device issue [Unknown]
  - Off label use [Unknown]
  - Injection site injury [Unknown]

NARRATIVE: CASE EVENT DATE: 20180308
